FAERS Safety Report 21448111 (Version 1)
Quarter: 2022Q4

REPORT INFORMATION
  Report Type: Spontaneous
  Country: US (occurrence: US)
  Receive Date: 20221012
  Receipt Date: 20221012
  Transmission Date: 20230112
  Serious: Yes (Other)
  Sender: FDA-Public Use
  Company Number: US-BRISTOL-MYERS SQUIBB COMPANY-2022-118408

PATIENT
  Age: 71 Year
  Sex: Male
  Weight: 78 kg

DRUGS (15)
  1. REVLIMID [Suspect]
     Active Substance: LENALIDOMIDE
     Indication: Plasma cell myeloma
     Dosage: 21 DAYS ON, 7 DAYS OFF
     Route: 048
     Dates: start: 20220527, end: 20220928
  2. VITAMINS NOS [Concomitant]
     Active Substance: VITAMINS
     Indication: Product used for unknown indication
     Route: 048
     Dates: start: 20220526
  3. VALACYCLOVIR HYDROCHLORIDE [Concomitant]
     Active Substance: VALACYCLOVIR HYDROCHLORIDE
     Indication: Product used for unknown indication
     Dosage: DAILY
     Route: 048
     Dates: start: 20220525
  4. MONTELUKAST SODIUM [Concomitant]
     Active Substance: MONTELUKAST SODIUM
     Indication: Product used for unknown indication
     Dosage: DAILY
     Route: 048
     Dates: start: 20220525
  5. DEXAMETHASONE [Concomitant]
     Active Substance: DEXAMETHASONE
     Indication: Product used for unknown indication
     Route: 048
     Dates: start: 20220525
  6. goodsense ibuprofene [Concomitant]
     Indication: Product used for unknown indication
     Route: 048
     Dates: start: 20220526
  7. VITAMIN D3 [Concomitant]
     Active Substance: CHOLECALCIFEROL
     Indication: Product used for unknown indication
     Dosage: 50 MCG(200
     Route: 048
     Dates: start: 20220526
  8. BORTEZOMIB [Concomitant]
     Active Substance: BORTEZOMIB
     Indication: Product used for unknown indication
     Route: 065
     Dates: start: 20220526
  9. DARZALEX [Concomitant]
     Active Substance: DARATUMUMAB
     Indication: Product used for unknown indication
     Dosage: 100MG/5ML
     Route: 042
     Dates: start: 20220526
  10. Citirizine HCL [Concomitant]
     Indication: Product used for unknown indication
     Route: 048
     Dates: start: 20220526
  11. OMEPRAZOLE [Concomitant]
     Active Substance: OMEPRAZOLE
     Indication: Product used for unknown indication
     Dosage: DAILY
     Route: 048
     Dates: start: 20220526
  12. TUSSIONEX PENNKINETIC [Concomitant]
     Active Substance: CHLORPHENIRAMINE\HYDROCODONE
     Indication: Cough
     Dosage: 10-8MG/5ML
     Route: 048
     Dates: start: 20220908
  13. ELIQUIS [Concomitant]
     Active Substance: APIXABAN
     Indication: Product used for unknown indication
     Route: 048
     Dates: start: 20220908
  14. FLOMAX [Concomitant]
     Active Substance: TAMSULOSIN HYDROCHLORIDE
     Indication: Product used for unknown indication
     Dosage: BED TIME
     Route: 048
     Dates: start: 20220908
  15. ALEVE [Concomitant]
     Active Substance: NAPROXEN SODIUM
     Indication: Product used for unknown indication
     Route: 048
     Dates: start: 20220908

REACTIONS (1)
  - Neutropenia [Recovered/Resolved]

NARRATIVE: CASE EVENT DATE: 20220922
